FAERS Safety Report 23756723 (Version 1)
Quarter: 2024Q2

REPORT INFORMATION
  Report Type: Spontaneous
  Country: CZ (occurrence: CZ)
  Receive Date: 20240418
  Receipt Date: 20240418
  Transmission Date: 20240716
  Serious: Yes (Hospitalization)
  Sender: FDA-Public Use
  Company Number: CZ-002147023-NVSC2022CZ304761

PATIENT

DRUGS (1)
  1. ONASEMNOGENE ABEPARVOVEC [Suspect]
     Active Substance: ONASEMNOGENE ABEPARVOVEC
     Indication: Product used for unknown indication
     Dosage: UNK UNK, ONCE/SINGLE
     Route: 042

REACTIONS (1)
  - Diabetes mellitus [Unknown]
